FAERS Safety Report 7518869 (Version 7)
Quarter: 2013Q2

REPORT INFORMATION
  Report Type: Spontaneous
  Country: US (occurrence: US)
  Receive Date: 20100802
  Receipt Date: 20130506
  Transmission Date: 20140414
  Serious: Yes (Death, Hospitalization)
  Sender: FDA-Public Use
  Company Number: US-JNJFOC-20100800033

PATIENT
  Age: 85 Year
  Sex: Male
  Weight: 90.72 kg

DRUGS (18)
  1. RISPERDAL [Suspect]
     Indication: AGGRESSION
     Route: 048
  2. RISPERDAL [Suspect]
     Indication: AGGRESSION
     Route: 048
     Dates: start: 200901, end: 200901
  3. RISPERDAL [Suspect]
     Indication: AGITATION
     Route: 048
  4. RISPERDAL [Suspect]
     Indication: AGITATION
     Route: 048
     Dates: start: 200901, end: 200901
  5. RISPERDAL [Suspect]
     Indication: DEMENTIA WITH LEWY BODIES
     Route: 048
  6. RISPERDAL [Suspect]
     Indication: DEMENTIA WITH LEWY BODIES
     Route: 048
     Dates: start: 200901, end: 200901
  7. CITRUCEL [Concomitant]
     Indication: CONSTIPATION
     Route: 048
  8. COLACE [Concomitant]
     Indication: CONSTIPATION
     Route: 048
  9. TYLENOL [Concomitant]
     Indication: PAIN MANAGEMENT
     Route: 048
  10. ECASA [Concomitant]
     Indication: PAIN MANAGEMENT
     Route: 065
  11. NORVASC [Concomitant]
     Indication: BLOOD PRESSURE
     Route: 048
  12. UNKNOWN MEDICATION [Concomitant]
     Indication: PRODUCT USED FOR UNKNOWN INDICATION
     Route: 048
  13. ARICEPT [Concomitant]
     Indication: DEMENTIA
     Route: 048
  14. ZANTAC [Concomitant]
     Indication: GASTRIC DISORDER
     Route: 048
  15. FOSAMAX [Concomitant]
     Indication: BONE DISORDER
     Route: 065
  16. OMEGA FISH OILS [Concomitant]
     Indication: BLOOD CHOLESTEROL
     Route: 065
  17. LUTEIN [Concomitant]
     Indication: EYE DISORDER
     Route: 065
  18. NAMENDA [Concomitant]
     Indication: DEMENTIA ALZHEIMER^S TYPE
     Route: 048

REACTIONS (16)
  - Dementia [Fatal]
  - Pneumonia aspiration [Fatal]
  - Cardiac disorder [Unknown]
  - Sedation [Not Recovered/Not Resolved]
  - Aspiration [Unknown]
  - Aggression [Not Recovered/Not Resolved]
  - Oxygen saturation decreased [Unknown]
  - Body temperature decreased [Unknown]
  - Dehydration [Not Recovered/Not Resolved]
  - Aphagia [Not Recovered/Not Resolved]
  - Somnolence [Unknown]
  - Loss of consciousness [Unknown]
  - Loss of consciousness [Not Recovered/Not Resolved]
  - Overdose [Not Recovered/Not Resolved]
  - Hypersomnia [Not Recovered/Not Resolved]
  - Lethargy [Unknown]
